FAERS Safety Report 9170742 (Version 1)
Quarter: 2013Q1

REPORT INFORMATION
  Report Type: Spontaneous
  Country: US (occurrence: None)
  Receive Date: 20130312
  Receipt Date: 20130312
  Transmission Date: 20140127
  Serious: Yes (Other)
  Sender: FDA-Public Use
  Company Number: FK201300671

PATIENT
  Age: 60 Year
  Sex: Male

DRUGS (7)
  1. LIDOCAINE [Suspect]
     Route: 061
  2. METOPROLOL (METOPROLOL) [Suspect]
  3. WARFARIN (WARFARIN) (WARFARIN) [Concomitant]
  4. LISINOPRIL (LISINOPRIL) (LISINOPRIL) [Concomitant]
  5. DOCUSATE SODIUM (DOCUSATE SODIUM) (DOCUSATE SODIUM) [Concomitant]
  6. POTASSIUM CHLORIDE (POTASSIUM CHLORIDE) (POTASSIUM CHLORIDE) [Concomitant]
  7. FUROSEMIDE [Suspect]

REACTIONS (7)
  - Ataxia [None]
  - Diplopia [None]
  - Toxicity to various agents [None]
  - Drug clearance decreased [None]
  - Cardiovascular disorder [None]
  - Metabolic disorder [None]
  - Hepatic fibrosis [None]
